FAERS Safety Report 8456521 (Version 10)
Quarter: 2014Q2

REPORT INFORMATION
  Report Type: Spontaneous
  Country: US (occurrence: US)
  Receive Date: 20120313
  Receipt Date: 20140606
  Transmission Date: 20141212
  Serious: Yes (Death, Hospitalization)
  Sender: FDA-Public Use
  Company Number: US-JNJFOC-20120303756

PATIENT
  Sex: Male
  Weight: 83.92 kg

DRUGS (10)
  1. TYLENOL EXTRA STRENGTH [Suspect]
     Route: 065
  2. TYLENOL EXTRA STRENGTH [Suspect]
     Indication: PAIN
     Dosage: 2-4 PILLS SEVERAL TIMES A DAY WHEN NEEDED
     Route: 065
     Dates: start: 2006, end: 2010
  3. PERCOCET [Suspect]
     Indication: PAIN
     Dosage: 10/325 MG
     Route: 065
     Dates: start: 200610, end: 201003
  4. OXYCODONE [Concomitant]
     Indication: PAIN
     Route: 065
  5. OXYCODONE [Concomitant]
     Indication: PAIN
     Route: 065
     Dates: start: 2008, end: 2010
  6. CITALOPRAM [Concomitant]
     Indication: DEPRESSION
     Route: 065
     Dates: start: 2009, end: 2010
  7. KLONOPIN [Concomitant]
     Indication: ANXIETY
     Route: 065
     Dates: start: 2007, end: 2009
  8. KLONOPIN [Concomitant]
     Indication: ANXIETY
     Route: 065
  9. OMEPRAZOLE [Concomitant]
     Indication: PEPTIC ULCER
     Route: 065
     Dates: start: 2000, end: 201003
  10. ATENOLOL [Concomitant]
     Indication: HYPERTENSION
     Route: 065
     Dates: start: 2009, end: 2010

REACTIONS (11)
  - Death [Fatal]
  - Respiratory distress [Unknown]
  - Acute hepatic failure [Fatal]
  - Toxicity to various agents [Fatal]
  - Renal failure acute [Fatal]
  - Sepsis [Fatal]
  - Lactic acidosis [Fatal]
  - Coagulopathy [Fatal]
  - Encephalopathy [Fatal]
  - Metabolic acidosis [Fatal]
  - Hypotension [Fatal]
